FAERS Safety Report 16898296 (Version 3)
Quarter: 2019Q4

REPORT INFORMATION
  Report Type: Spontaneous
  Country: ES (occurrence: ES)
  Receive Date: 20191009
  Receipt Date: 20191230
  Transmission Date: 20200122
  Serious: Yes (Other)
  Sender: FDA-Public Use
  Company Number: ES-AUROBINDO-AUR-APL-2019-065022

PATIENT
  Age: 49 Year
  Sex: Male

DRUGS (4)
  1. DARUNAVIR [Suspect]
     Active Substance: DARUNAVIR
     Indication: HIV-2 INFECTION
     Dosage: UNK
     Route: 065
  2. RALTEGRAVIR POTASSIUM [Suspect]
     Active Substance: RALTEGRAVIR POTASSIUM
     Indication: HIV-2 INFECTION
     Dosage: UNK
     Route: 048
  3. TENOFOVIR DISOPROXIL [Suspect]
     Active Substance: TENOFOVIR DISOPROXIL
     Indication: HIV-2 INFECTION
     Dosage: UNK
     Route: 065
  4. EMTRICITABINE [Suspect]
     Active Substance: EMTRICITABINE
     Indication: HIV-2 INFECTION
     Dosage: UNK
     Route: 065

REACTIONS (3)
  - Gene mutation [Unknown]
  - Product use in unapproved indication [Unknown]
  - Pathogen resistance [Unknown]
